FAERS Safety Report 17759773 (Version 2)
Quarter: 2020Q2

REPORT INFORMATION
  Report Type: Spontaneous
  Country: DE (occurrence: DE)
  Receive Date: 20200508
  Receipt Date: 20200508
  Transmission Date: 20200714
  Serious: Yes (Life-Threatening, Hospitalization)
  Sender: FDA-Public Use
  Company Number: DE-PFIZER INC-2020180497

PATIENT
  Age: 75 Year
  Sex: Male
  Weight: 100 kg

DRUGS (10)
  1. TIMOLOL. [Interacting]
     Active Substance: TIMOLOL
     Dosage: UNK UNK, 1X/DAY (0-0-1)
  2. AMLODIPINE BESILATE [Suspect]
     Active Substance: AMLODIPINE BESYLATE
     Dosage: 5 MG, 1X/DAY (1-0-0)
  3. CANDESARTAN. [Concomitant]
     Active Substance: CANDESARTAN
     Dosage: 16 MG, 1X/DAY (1-0-0)
  4. ATROPINE. [Concomitant]
     Active Substance: ATROPINE
     Indication: BRADYCARDIA
     Dosage: UNK
  5. RIVAROXABAN [Concomitant]
     Active Substance: RIVAROXABAN
     Dosage: 20 MG, 1X/DAY (1-0-0)
  6. BISOPROLOL [Interacting]
     Active Substance: BISOPROLOL
     Dosage: 5 MG, 1X/DAY (1-0-0)
  7. GINKGO BILOBA [Concomitant]
     Active Substance: GINKGO
     Dosage: 200 MG, ALTERNATE DAY (1X1 EVERY 2 DAYS)
  8. DRONEDARONE [Interacting]
     Active Substance: DRONEDARONE
     Indication: ATRIAL FIBRILLATION
     Dosage: 400 MG, 2X/DAY (1-0-1)
  9. TAFLUPROST [Concomitant]
     Active Substance: TAFLUPROST
     Dosage: 15 UG/ML, 1X/DAY (1-0-0)
  10. ALFUZOSIN [Concomitant]
     Active Substance: ALFUZOSIN
     Dosage: 10 MG, 1X/DAY (1-0-0)

REACTIONS (7)
  - Dyspnoea exertional [Unknown]
  - Drug interaction [Recovered/Resolved]
  - Atrioventricular block second degree [Recovered/Resolved]
  - Dizziness [Unknown]
  - Atrioventricular block [Recovered/Resolved]
  - Bradycardia [Recovered/Resolved]
  - Cold sweat [Unknown]
